FAERS Safety Report 20980375 (Version 2)
Quarter: 2022Q3

REPORT INFORMATION
  Report Type: Spontaneous
  Country: FR (occurrence: FR)
  Receive Date: 20220620
  Receipt Date: 20220702
  Transmission Date: 20221027
  Serious: Yes (Hospitalization, Other)
  Sender: FDA-Public Use
  Company Number: FR-CELLTRION INC.-2022FR009195

PATIENT

DRUGS (2)
  1. INFLIXIMAB [Suspect]
     Active Substance: INFLIXIMAB
     Indication: Uveitis
     Dosage: 5 MG/KG AT WEEK 0,2,6
     Route: 042
  2. INFLIXIMAB [Suspect]
     Active Substance: INFLIXIMAB
     Indication: Macular oedema
     Dosage: 5 MG/KG (EVERY 4-6 WEEKS)
     Route: 042

REACTIONS (3)
  - Meningitis [Unknown]
  - Product use in unapproved indication [Unknown]
  - Off label use [Unknown]
